FAERS Safety Report 4440406-8 (Version None)
Quarter: 2004Q3

REPORT INFORMATION
  Report Type: 
  Country: None (occurrence: None)
  Receive Date: 20040728
  Receipt Date: 20040319
  Transmission Date: 20050211
  Serious: No
  Sender: FDA-Public Use
  Company Number: USA040362642

PATIENT
  Age: 55 Year
  Sex: Male
  Weight: 93 kg

DRUGS (6)
  1. STRATTERA [Suspect]
     Indication: ATTENTION DEFICIT/HYPERACTIVITY DISORDER
     Dosage: 80 MG DAY
     Dates: start: 20040201
  2. ZYPREXA [Suspect]
     Dosage: 10 MG AT BEDTIME
     Dates: start: 20030301
  3. PAXIL [Concomitant]
  4. VISTARIL [Concomitant]
  5. ALBUTEROL [Concomitant]
  6. DEPAKOTE [Concomitant]

REACTIONS (1)
  - INFLUENZA [None]
